FAERS Safety Report 5751525-8 (Version None)
Quarter: 2008Q2

REPORT INFORMATION
  Report Type: 
  Country: None (occurrence: None)
  Receive Date: 20080527
  Receipt Date: 20080521
  Transmission Date: 20081010
  Serious: Yes (Other)
  Sender: FDA-Public Use
  Company Number: A0729123A

PATIENT
  Age: 61 Year
  Sex: Male

DRUGS (2)
  1. UREA PEROXIDE [Suspect]
     Indication: CERUMEN REMOVAL
     Dosage: SEE DOSAGE TEXT/ EAR DROPS
     Dates: start: 20080521
  2. LOPERAMIDE HYDROCHLORIDE [Concomitant]

REACTIONS (5)
  - DEAFNESS UNILATERAL [None]
  - DIZZINESS [None]
  - EAR DISCOMFORT [None]
  - EAR PAIN [None]
  - HEADACHE [None]
